FAERS Safety Report 26133611 (Version 1)
Quarter: 2025Q4

REPORT INFORMATION
  Report Type: Spontaneous
  Country: CN (occurrence: CN)
  Receive Date: 20251209
  Receipt Date: 20251209
  Transmission Date: 20260118
  Serious: Yes (Other)
  Sender: ALKEM
  Company Number: CN-ALKEM LABORATORIES LIMITED-CN-ALKEM-2025-12045

PATIENT
  Age: 52 Year
  Sex: Female

DRUGS (3)
  1. VANCOMYCIN [Suspect]
     Active Substance: VANCOMYCIN
     Indication: Infection prophylaxis
     Dosage: 1 GRAM, TID
     Route: 042
  2. LINEZOLID [Suspect]
     Active Substance: LINEZOLID
     Indication: Infection prophylaxis
     Dosage: 600 MILLIGRAM, BID (INJECTION)
     Route: 042
     Dates: start: 20190806, end: 20190820
  3. MEROPENEM [Concomitant]
     Active Substance: MEROPENEM
     Indication: Infection prophylaxis
     Dosage: 2 GRAM, TID
     Route: 042

REACTIONS (4)
  - Neutropenia [Unknown]
  - Trichoglossia [Recovered/Resolved]
  - Nausea [Unknown]
  - Vomiting [Unknown]

NARRATIVE: CASE EVENT DATE: 20190808
